FAERS Safety Report 7023897-8 (Version None)
Quarter: 2010Q3

REPORT INFORMATION
  Report Type: 
  Country: None (occurrence: None)
  Receive Date: 20100916
  Receipt Date: 20100805
  Transmission Date: 20110219
  Serious: Yes (Other)
  Sender: FDA-Public Use
  Company Number: DKLU1064172

PATIENT
  Age: 62 Year
  Sex: Male

DRUGS (5)
  1. SABRIL [Suspect]
     Indication: COMPLEX PARTIAL SEIZURES
     Dosage: 500 MG MILLIGRAM(S), 2 IN 1 D, ORAL, 500 MG MILLIGRAM(S), 2 IN 1 D, ORAL
     Route: 048
     Dates: start: 20100401, end: 20100101
  2. SABRIL [Suspect]
     Indication: COMPLEX PARTIAL SEIZURES
     Dosage: 500 MG MILLIGRAM(S), 2 IN 1 D, ORAL, 500 MG MILLIGRAM(S), 2 IN 1 D, ORAL
     Route: 048
     Dates: start: 20100101
  3. DEPAKOTE [Concomitant]
  4. KEPPRA [Concomitant]
  5. PHENOBARBITAL TAB [Concomitant]

REACTIONS (4)
  - COGNITIVE DISORDER [None]
  - DIZZINESS [None]
  - GAIT DISTURBANCE [None]
  - VISUAL FIELD DEFECT [None]
